FAERS Safety Report 6191345-6 (Version None)
Quarter: 2009Q2

REPORT INFORMATION
  Report Type: 
  Country: None (occurrence: None)
  Receive Date: 20090515
  Receipt Date: 20090507
  Transmission Date: 20091009
  Serious: Yes (Other)
  Sender: FDA-Public Use
  Company Number: US-BAYER-200920393NA

PATIENT
  Age: 22 Year
  Sex: Female

DRUGS (1)
  1. MIRENA [Suspect]
     Indication: CONTRACEPTION
     Dosage: CONTINUOUS
     Route: 015
     Dates: start: 20090430

REACTIONS (11)
  - ABDOMINAL PAIN LOWER [None]
  - CONVULSION [None]
  - DYSKINESIA [None]
  - EYE ROLLING [None]
  - FEELING HOT [None]
  - METRORRHAGIA [None]
  - PERIPHERAL COLDNESS [None]
  - POST PROCEDURAL HAEMORRHAGE [None]
  - SPEECH DISORDER [None]
  - SYNCOPE [None]
  - VISUAL IMPAIRMENT [None]
